FAERS Safety Report 8155537-9 (Version None)
Quarter: 2012Q1

REPORT INFORMATION
  Report Type: 
  Country: None (occurrence: None)
  Receive Date: 20120215
  Receipt Date: 20120208
  Transmission Date: 20120608
  Serious: Yes (Hospitalization)
  Sender: FDA-Public Use
  Company Number: 1000027838

PATIENT
  Age: 81 Year
  Sex: Female
  Weight: 65 kg

DRUGS (12)
  1. PROMETHAZINE (PROMETHAZINE) (25 MILLIGRAM, TABLETS) (PROMETHAZINE) [Concomitant]
  2. TRAMADOL (TRAMADOL) (50 MICROGRAM, CAPSULES) (TRAMADOL) [Concomitant]
  3. ESOMEPRAZOLE (ESOMEPRAZOLE) (40 MILLIGRAM, TABLETS) (ESOMEPRAZOLE) [Concomitant]
  4. SPIRIVA (TIOTROPIUM BROMIDE) (18 MICROGRAM) (TIOTROPIUM BROMIDE) [Concomitant]
  5. CARBASALATE (CARBASALATE) (100 MILLIGRAM, TABLETS) (CARBASALATE) [Concomitant]
  6. LOSARTAN W/ HYDROCHLOROTHIAZIDE (LOSARTAN, HYDROCHLOROTHIAZIDE) (TABLE [Concomitant]
  7. NITRAZEPAM (NITRAZEPAM) (5 MILLIGRAM, TABLETS) (NITRAZEPAM) [Concomitant]
  8. NITROGLYCERINE (GLYCERYL TRINITRATE) (0.4 MILLIGRAM, SPRAY (NOT INHALA [Concomitant]
  9. ROFLUMILAST (ROFLUMILAST) (500 MICROGRAM, TABLETS) [Suspect]
     Indication: CHRONIC OBSTRUCTIVE PULMONARY DISEASE
     Dosage: 500 MCG (500 MCG, 1 IN 1 D), ORAL, 250 MCG (250 MCG, 1 IN 1 D), ORAL
     Route: 048
     Dates: start: 20110703, end: 20110101
  10. ROFLUMILAST (ROFLUMILAST) (500 MICROGRAM, TABLETS) [Suspect]
     Indication: CHRONIC OBSTRUCTIVE PULMONARY DISEASE
     Dosage: 500 MCG (500 MCG, 1 IN 1 D), ORAL, 250 MCG (250 MCG, 1 IN 1 D), ORAL
     Route: 048
     Dates: start: 20110101, end: 20111001
  11. COMBIVENT (SALBUTAMOL, IPRATROPIUM) (SALBUTAMOL, IPRATROPIUM) [Concomitant]
  12. CALCICHEW-D3 (CALCIUM CARBONATE, CHOLECALCIFEROL) (500 MILLIGRAM, TABL [Concomitant]

REACTIONS (7)
  - HEADACHE [None]
  - DIARRHOEA [None]
  - TOXICITY TO VARIOUS AGENTS [None]
  - DECREASED APPETITE [None]
  - DEHYDRATION [None]
  - PALPITATIONS [None]
  - NAUSEA [None]
